FAERS Safety Report 12286263 (Version 13)
Quarter: 2017Q1

REPORT INFORMATION
  Report Type: Spontaneous
  Country: US (occurrence: US)
  Receive Date: 20160420
  Receipt Date: 20170206
  Transmission Date: 20170428
  Serious: Yes (Other)
  Sender: FDA-Public Use
  Company Number: US-PFIZER INC-2016201346

PATIENT
  Age: 75 Year
  Sex: Female
  Weight: 86 kg

DRUGS (18)
  1. IBRANCE [Suspect]
     Active Substance: PALBOCICLIB
     Indication: BREAST CANCER METASTATIC
     Dosage: 125 MG, CYCLIC (DAYS 1-21 EVERY 28 DAYS)
     Route: 048
     Dates: start: 20151102
  2. IBRANCE [Suspect]
     Active Substance: PALBOCICLIB
     Dosage: 125 MG, CYCLIC (DAYS 1-21 Q28 DAYS)
     Route: 048
     Dates: start: 20151102
  3. XGEVA [Concomitant]
     Active Substance: DENOSUMAB
     Indication: BREAST CANCER
     Dosage: 120 MG, MONTHLY (Q MONTHLY)
     Route: 058
     Dates: start: 201609
  4. IBRANCE [Suspect]
     Active Substance: PALBOCICLIB
     Dosage: 125 MG, CYCLIC (1D-21D Q 28D)
     Route: 048
     Dates: start: 20151102
  5. IBRANCE [Suspect]
     Active Substance: PALBOCICLIB
     Dosage: 125 MG, CYCLIC (DAILY 3 WEEKS ON, 1 WK OFF)
     Route: 048
     Dates: start: 201510, end: 201601
  6. IBRANCE [Suspect]
     Active Substance: PALBOCICLIB
     Dosage: UNK
  7. XGEVA [Concomitant]
     Active Substance: DENOSUMAB
     Indication: BONE LESION
  8. FENTANYL. [Concomitant]
     Active Substance: FENTANYL
     Indication: PAIN
     Dosage: 25 MCG TRANSDERMAL + 12 MCG Q 72 HRS
     Route: 062
     Dates: start: 201606
  9. IBRANCE [Suspect]
     Active Substance: PALBOCICLIB
     Dosage: UNK
  10. IBRANCE [Suspect]
     Active Substance: PALBOCICLIB
     Dosage: 125 MG, 1X/DAY
     Route: 048
  11. ATIVAN [Concomitant]
     Active Substance: LORAZEPAM
     Indication: ANXIETY
     Dosage: 1 MG, AS NEEDED (DAILY)
     Dates: start: 201606
  12. IBRANCE [Suspect]
     Active Substance: PALBOCICLIB
     Dosage: UNK
  13. IBRANCE [Suspect]
     Active Substance: PALBOCICLIB
     Dosage: 125 MG, CYCLIC, (QD X 3 WEEKS1 WEEK OFF)
     Route: 048
     Dates: start: 201510
  14. IBRANCE [Suspect]
     Active Substance: PALBOCICLIB
     Dosage: UNK
  15. IBRANCE [Suspect]
     Active Substance: PALBOCICLIB
     Dosage: UNK
  16. IBRANCE [Suspect]
     Active Substance: PALBOCICLIB
     Dosage: UNK
  17. IBRANCE [Suspect]
     Active Substance: PALBOCICLIB
     Dosage: 125 MG, CYCLIC(DAYS 1-21 Q 28 DAYS)
     Route: 048
     Dates: start: 20151102
  18. IBRANCE [Suspect]
     Active Substance: PALBOCICLIB
     Dosage: 125 MG, CYCLIC (DAYS 1-21 Q28 DAYS)
     Route: 048
     Dates: start: 20151102

REACTIONS (23)
  - Productive cough [Not Recovered/Not Resolved]
  - Dyspnoea [Not Recovered/Not Resolved]
  - Disease progression [Unknown]
  - Vulvovaginal mycotic infection [Unknown]
  - Fatigue [Not Recovered/Not Resolved]
  - Impaired healing [Unknown]
  - Rash pruritic [Unknown]
  - Depression [Not Recovered/Not Resolved]
  - Acne [Unknown]
  - Atelectasis [Unknown]
  - Spinal pain [Unknown]
  - Dry eye [Unknown]
  - Chest pain [Unknown]
  - Musculoskeletal pain [Unknown]
  - Nausea [Not Recovered/Not Resolved]
  - Rash [Not Recovered/Not Resolved]
  - Bronchitis [Unknown]
  - Hyponatraemia [Unknown]
  - Breast cancer metastatic [Unknown]
  - Neutropenia [Unknown]
  - Hot flush [Unknown]
  - Oral pain [Unknown]
  - Osteonecrosis of jaw [Unknown]

NARRATIVE: CASE EVENT DATE: 2016
